FAERS Safety Report 12301207 (Version 1)
Quarter: 2016Q2

REPORT INFORMATION
  Report Type: Spontaneous
  Country: GB (occurrence: GB)
  Receive Date: 20160425
  Receipt Date: 20160425
  Transmission Date: 20160815
  Serious: Yes (Other)
  Sender: FDA-Public Use
  Company Number: GB-WATSON-2016-07902

PATIENT
  Age: 78 Year
  Sex: Female
  Weight: 64 kg

DRUGS (3)
  1. NAPROXEN (UNKNOWN) [Suspect]
     Active Substance: NAPROXEN
     Indication: OSTEOARTHRITIS
     Dosage: 250 MG, UNKNOWN
     Route: 048
     Dates: start: 20140808, end: 20160330
  2. OVESTIN [Concomitant]
     Active Substance: ESTRIOL
     Indication: PRODUCT USED FOR UNKNOWN INDICATION
     Dosage: UNK
     Route: 065
  3. PIROXICAM. [Concomitant]
     Active Substance: PIROXICAM
     Indication: PRODUCT USED FOR UNKNOWN INDICATION
     Dosage: UNK
     Route: 065

REACTIONS (4)
  - Local reaction [Unknown]
  - Nausea [Unknown]
  - Epigastric discomfort [Unknown]
  - Hyperhidrosis [Unknown]

NARRATIVE: CASE EVENT DATE: 20160330
